APPROVED DRUG PRODUCT: DROPERIDOL
Active Ingredient: DROPERIDOL
Strength: 2.5MG/ML
Dosage Form/Route: INJECTABLE;INJECTION
Application: A073520 | Product #001
Applicant: WATSON LABORATORIES INC
Approved: Nov 27, 1991 | RLD: No | RS: No | Type: DISCN